FAERS Safety Report 19050799 (Version 1)
Quarter: 2021Q1

REPORT INFORMATION
  Report Type: Spontaneous
  Country: US (occurrence: US)
  Receive Date: 20210323
  Receipt Date: 20210323
  Transmission Date: 20210420
  Serious: Yes (Hospitalization, Other)
  Sender: FDA-Public Use
  Company Number: US-ASTRAZENECA-2021A159259

PATIENT
  Age: 65 Year
  Sex: Female

DRUGS (16)
  1. REBIF REBIDOSE [Concomitant]
     Active Substance: INTERFERON BETA-1A
  2. GABAPENTIN. [Concomitant]
     Active Substance: GABAPENTIN
  3. TARCEVA [Suspect]
     Active Substance: ERLOTINIB HYDROCHLORIDE
     Indication: PRODUCT USED FOR UNKNOWN INDICATION
     Route: 065
  4. VITAMIN C [Concomitant]
     Active Substance: ASCORBIC ACID
  5. LISINOPRIL. [Suspect]
     Active Substance: LISINOPRIL
     Route: 048
  6. TAGRISSO [Suspect]
     Active Substance: OSIMERTINIB
     Indication: PRODUCT USED FOR UNKNOWN INDICATION
     Route: 048
  7. AMPYRA [Suspect]
     Active Substance: DALFAMPRIDINE
     Indication: MULTIPLE SCLEROSIS
     Route: 048
  8. GARLIC. [Concomitant]
     Active Substance: GARLIC
  9. VITAMIN D3 [Concomitant]
     Active Substance: CHOLECALCIFEROL
  10. SYMBICORT [Suspect]
     Active Substance: BUDESONIDE\FORMOTEROL FUMARATE DIHYDRATE
     Route: 055
  11. TARCEVA [Suspect]
     Active Substance: ERLOTINIB HYDROCHLORIDE
     Indication: PRODUCT USED FOR UNKNOWN INDICATION
     Dosage: ERLOTINIB ? GENERIC
     Route: 065
  12. REBIF [Concomitant]
     Active Substance: INTERFERON BETA-1A
  13. ASPIRIN. [Concomitant]
     Active Substance: ASPIRIN
  14. NORVASC [Concomitant]
     Active Substance: AMLODIPINE BESYLATE
  15. BACLOFEN. [Concomitant]
     Active Substance: BACLOFEN
  16. MULTIVITAMIN [Concomitant]
     Active Substance: VITAMINS

REACTIONS (12)
  - Skin disorder [Unknown]
  - Dyspnoea [Unknown]
  - Lung carcinoma cell type unspecified stage IV [Unknown]
  - Malignant neoplasm progression [Unknown]
  - Product dose omission issue [Unknown]
  - Suspected COVID-19 [Unknown]
  - Acne [Unknown]
  - Drug hypersensitivity [Unknown]
  - Ocular hyperaemia [Recovering/Resolving]
  - Malaise [Unknown]
  - Abdominal pain lower [Unknown]
  - Rash [Not Recovered/Not Resolved]
